FAERS Safety Report 8149496-2 (Version None)
Quarter: 2012Q1

REPORT INFORMATION
  Report Type: 
  Country: None (occurrence: None)
  Receive Date: 20120218
  Receipt Date: 20111025
  Transmission Date: 20120608
  Serious: No
  Sender: FDA-Public Use
  Company Number: US-ALLERGAN-1114062US

PATIENT
  Age: 55 Year
  Sex: Male
  Weight: 81.633 kg

DRUGS (1)
  1. BOTULINUM TOXIN TYPE A [Suspect]
     Indication: MUSCLE SPASTICITY
     Dosage: 400 UNITS, SINGLE
     Route: 030
     Dates: start: 20111013, end: 20111013

REACTIONS (2)
  - MUSCLE SPASTICITY [None]
  - PAIN [None]
